FAERS Safety Report 4549793-3 (Version None)
Quarter: 2004Q4

REPORT INFORMATION
  Report Type: 
  Country: None (occurrence: None)
  Receive Date: 20041227
  Receipt Date: 20041027
  Transmission Date: 20050328
  Serious: No
  Sender: FDA-Public Use
  Company Number: 04P-163-0279214-00

PATIENT
  Age: 70 Year
  Sex: Male
  Weight: 92.9874 kg

DRUGS (7)
  1. HUMIRA [Suspect]
     Indication: RHEUMATOID ARTHRITIS
     Dosage: 40 MG, 1 IN 2 WK, SUBCUTANEOUS
     Route: 058
     Dates: start: 20030101
  2. PREDNISONE [Concomitant]
  3. BUCINDOLOL HYDROCHLORIDE [Concomitant]
  4. FUROSEMIDE [Concomitant]
  5. DILTIAZEM HYDROCHLORIDE [Concomitant]
  6. WARFARIN SODIUM [Concomitant]
  7. ZOLPIDEM TARTRATE [Concomitant]

REACTIONS (1)
  - DYSPNOEA [None]
